FAERS Safety Report 7014462-7 (Version None)
Quarter: 2010Q3

REPORT INFORMATION
  Report Type: 
  Country: None (occurrence: None)
  Receive Date: 20100927
  Receipt Date: 20100914
  Transmission Date: 20110219
  Serious: Yes (Hospitalization)
  Sender: FDA-Public Use
  Company Number: CA-ELI_LILLY_AND_COMPANY-CA201009003726

PATIENT
  Age: 46 Year
  Sex: Male

DRUGS (4)
  1. FORTEO [Suspect]
     Indication: OSTEOPOROSIS
     Dosage: 20 UG, DAILY (1/D)
     Dates: start: 20090313
  2. VITAMIN D [Concomitant]
  3. CALCIUM [Concomitant]
  4. CORTISOL [Concomitant]

REACTIONS (2)
  - FALL [None]
  - FEMUR FRACTURE [None]
